FAERS Safety Report 7694113-9 (Version None)
Quarter: 2011Q3

REPORT INFORMATION
  Report Type: 
  Country: None (occurrence: None)
  Receive Date: 20110819
  Receipt Date: 20110809
  Transmission Date: 20111222
  Serious: No
  Sender: FDA-Public Use
  Company Number: US-JNJFOC-20110805534

PATIENT
  Sex: Female
  Weight: 104.33 kg

DRUGS (5)
  1. PREMARIN [Concomitant]
     Indication: HORMONE LEVEL ABNORMAL
     Route: 048
  2. DURAGESIC-100 [Suspect]
     Dosage: 2 X 100 UG/HR = 200 UG/HR PATCHES
     Route: 062
     Dates: start: 20110802
  3. LEVOTHYROXINE SODIUM [Concomitant]
     Indication: THYROID DISORDER
     Route: 048
  4. PROPRANOLOL [Concomitant]
     Indication: BLOOD PRESSURE
     Route: 048
  5. DURAGESIC-100 [Suspect]
     Indication: BACK PAIN
     Route: 062
     Dates: start: 20000101

REACTIONS (6)
  - DRUG INEFFECTIVE [None]
  - ADVERSE DRUG REACTION [None]
  - PRODUCT QUALITY ISSUE [None]
  - HYSTERECTOMY [None]
  - WRONG TECHNIQUE IN DRUG USAGE PROCESS [None]
  - ABNORMAL LOSS OF WEIGHT [None]
